FAERS Safety Report 5220565-X (Version None)
Quarter: 2007Q1

REPORT INFORMATION
  Report Type: 
  Country: None (occurrence: None)
  Receive Date: 20070126
  Receipt Date: 20070116
  Transmission Date: 20070707
  Serious: Yes (Other)
  Sender: FDA-Public Use
  Company Number: PHFR2006GB03550

PATIENT
  Age: 39 Year
  Sex: Male
  Weight: 98 kg

DRUGS (4)
  1. TEGRETOL [Suspect]
     Indication: EPILEPSY
     Dosage: 200 MG, BID
     Route: 065
     Dates: start: 19920101
  2. VENTOLIN [Concomitant]
     Indication: ASTHMA
     Dosage: PRN
  3. SERETIDE EVOHALER [Concomitant]
     Indication: ASTHMA
     Dosage: UNK, BID
  4. DESLORATIDINE [Concomitant]
     Indication: ASTHMA
     Dosage: 5 MG, QD
     Route: 048

REACTIONS (2)
  - SPERM COUNT DECREASED [None]
  - SPERMATOGENESIS ABNORMAL [None]
